FAERS Safety Report 23578675 (Version 1)
Quarter: 2024Q1

REPORT INFORMATION
  Report Type: Report from Study
  Country: CA (occurrence: CA)
  Receive Date: 20240229
  Receipt Date: 20240229
  Transmission Date: 20240410
  Serious: Yes (Life-Threatening, Other)
  Sender: FDA-Public Use
  Company Number: CA-SAMSUNG BIOEPIS-SB-2023-27293

PATIENT
  Sex: Female
  Weight: 95 kg

DRUGS (2)
  1. RENFLEXIS [Suspect]
     Active Substance: INFLIXIMAB-ABDA
     Indication: Ankylosing spondylitis
     Route: 042
     Dates: start: 20230424
  2. RENFLEXIS [Suspect]
     Active Substance: INFLIXIMAB-ABDA
     Indication: Colitis ulcerative
     Route: 042
     Dates: start: 20230424

REACTIONS (6)
  - Uterine cancer [Recovering/Resolving]
  - Ovarian cancer [Not Recovered/Not Resolved]
  - Incorrect drug administration rate [Unknown]
  - Incision site impaired healing [Recovering/Resolving]
  - Skin exfoliation [Unknown]
  - Dry skin [Recovering/Resolving]
